FAERS Safety Report 8923603 (Version 3)
Quarter: 2013Q3

REPORT INFORMATION
  Report Type: Spontaneous
  Country: JP (occurrence: JP)
  Receive Date: 20121123
  Receipt Date: 20130814
  Transmission Date: 20140515
  Serious: Yes (Other)
  Sender: FDA-Public Use
  Company Number: PHHY2012JP106798

PATIENT
  Age: 83 Year
  Sex: Male
  Weight: 72 kg

DRUGS (3)
  1. ZOMETA [Suspect]
     Indication: METASTASES TO BONE
     Dosage: 4 MG, UNK
     Route: 041
     Dates: start: 20100315, end: 20110725
  2. ZOLADEX [Concomitant]
     Indication: PROSTATE CANCER
     Dosage: 10.8 MG, UNK
     Route: 058
     Dates: start: 20100315
  3. ODYNE [Concomitant]
     Indication: PROSTATE CANCER
     Dosage: 125 MG, UNK
     Route: 048
     Dates: start: 20100315

REACTIONS (9)
  - Osteonecrosis of jaw [Not Recovered/Not Resolved]
  - Swelling [Not Recovered/Not Resolved]
  - Tooth disorder [Not Recovered/Not Resolved]
  - Erythema [Unknown]
  - Osteomyelitis [Unknown]
  - Soft tissue infection [Unknown]
  - Jaw fracture [Unknown]
  - Impaired healing [Unknown]
  - Metastases to bone [Unknown]
